FAERS Safety Report 15059130 (Version 1)
Quarter: 2018Q2

REPORT INFORMATION
  Report Type: Spontaneous
  Country: DE (occurrence: DE)
  Receive Date: 20180625
  Receipt Date: 20180625
  Transmission Date: 20180711
  Serious: Yes (Death, Hospitalization)
  Sender: FDA-Public Use
  Company Number: PHHY2009DE38192

PATIENT
  Age: 74 Year
  Sex: Male

DRUGS (2)
  1. GLIVEC [Suspect]
     Active Substance: IMATINIB MESYLATE
     Indication: CHRONIC MYELOID LEUKAEMIA
     Dosage: 400 MG, UNK
     Route: 065
     Dates: start: 200307, end: 200312
  2. DECITABINE. [Concomitant]
     Active Substance: DECITABINE
     Indication: PRODUCT USED FOR UNKNOWN INDICATION
     Dosage: UNK
     Route: 065

REACTIONS (8)
  - Myelodysplastic syndrome [Unknown]
  - White blood cell count increased [Unknown]
  - Systemic mycosis [Fatal]
  - Refractory anaemia with an excess of blasts [Unknown]
  - Chromosome analysis abnormal [Unknown]
  - Acute myeloid leukaemia [Unknown]
  - Performance status decreased [Unknown]
  - Pancytopenia [Unknown]
